FAERS Safety Report 7439442-9 (Version None)
Quarter: 2011Q2

REPORT INFORMATION
  Report Type: 
  Country: None (occurrence: None)
  Receive Date: 20110427
  Receipt Date: 20110418
  Transmission Date: 20111010
  Serious: Yes (Other)
  Sender: FDA-Public Use
  Company Number: US-TYCO HEALTHCARE/MALLINCKRODT-T201100814

PATIENT
  Sex: Male
  Weight: 81.633 kg

DRUGS (15)
  1. XANAX [Concomitant]
     Indication: ANXIETY
     Dosage: 0.5 MG, QID
  2. RANITIDINE [Concomitant]
     Dosage: 300 MG, QD
  3. LISINOPRIL [Concomitant]
     Dosage: 20 MG, QD
  4. DOXYCYCLINE [Concomitant]
     Indication: GASTROINTESTINAL INFECTION
     Dosage: UNK
  5. FLUTICASONE PROPIONATE [Concomitant]
     Dosage: UNK
  6. XANAX [Concomitant]
     Indication: DEPRESSION
  7. REMERON [Concomitant]
     Indication: SLEEP DISORDER
     Dosage: UNK
  8. FENTANYL-100 [Suspect]
     Indication: BACK PAIN
     Dosage: 1 PATCH EVERY 72 HOURS
     Route: 062
     Dates: start: 20110323
  9. METOCLOPRAMIDE [Concomitant]
     Indication: GASTROINTESTINAL DISORDER
     Dosage: 5 MG, QD
  10. METOPROLOL [Concomitant]
     Indication: BLOOD PRESSURE INCREASED
     Dosage: 50 MG, QD
  11. PLAVIX [Concomitant]
     Dosage: 75 MG, QD
  12. PERCOCET [Concomitant]
     Indication: PAIN
  13. PREVACID [Concomitant]
     Dosage: BID
  14. LACTULOSE [Concomitant]
  15. CRESTOR [Concomitant]
     Dosage: 40 MG, QD

REACTIONS (7)
  - INAPPROPRIATE SCHEDULE OF DRUG ADMINISTRATION [None]
  - WEIGHT DECREASED [None]
  - DRUG INEFFECTIVE [None]
  - TREMOR [None]
  - DECREASED APPETITE [None]
  - DRUG SCREEN NEGATIVE [None]
  - ABDOMINAL DISCOMFORT [None]
